FAERS Safety Report 22267401 (Version 2)
Quarter: 2023Q2

REPORT INFORMATION
  Report Type: Spontaneous
  Country: GB (occurrence: None)
  Receive Date: 20230428
  Receipt Date: 20230509
  Transmission Date: 20230722
  Serious: Yes (Other)
  Sender: FDA-Public Use
  Company Number: 2023A099398

PATIENT
  Age: 34 Year
  Sex: Female

DRUGS (85)
  1. ASTRAZENECA COVID-19 VACCINE [Suspect]
     Active Substance: AZD-1222
     Indication: COVID-19 immunisation
     Dosage: 0.5 ML0.5ML UNKNOWN
     Dates: start: 20210204
  2. ASTRAZENECA COVID-19 VACCINE [Suspect]
     Active Substance: AZD-1222
     Indication: COVID-19 immunisation
     Dosage: DOSE 1 UNKNOWN
     Dates: start: 20210313
  3. ASTRAZENECA COVID-19 VACCINE [Suspect]
     Active Substance: AZD-1222
     Indication: COVID-19 immunisation
     Dosage: DOSE 2 UNKNOWN
     Dates: start: 20210521
  4. ASTRAZENECA COVID-19 VACCINE [Suspect]
     Active Substance: AZD-1222
     Indication: COVID-19 immunisation
     Dosage: DOSE 2 UNKNOWN
     Dates: start: 20210319
  5. ASTRAZENECA COVID-19 VACCINE [Suspect]
     Active Substance: AZD-1222
     Indication: COVID-19 immunisation
     Dosage: DOSE 2 UNKNOWN
     Dates: start: 20210508
  6. ASTRAZENECA COVID-19 VACCINE [Suspect]
     Active Substance: AZD-1222
     Indication: COVID-19 immunisation
     Dosage: DOSE 2 UNKNOWN
     Dates: start: 20210508
  7. BUDESONIDE [Suspect]
     Active Substance: BUDESONIDE
     Indication: Colitis ulcerative
     Dosage: DOSAGE FORM, Q8WK
     Dates: start: 200707
  8. OMEPRAZOLE [Suspect]
     Active Substance: OMEPRAZOLE
  9. ROSUVASTATIN [Suspect]
     Active Substance: ROSUVASTATIN
     Dosage: NIGHT
  10. ESOMEPRAZOLE [Suspect]
     Active Substance: ESOMEPRAZOLE
     Indication: Gastritis
     Dosage: UNKNOWN
     Dates: start: 20230305
  11. FELODIPINE [Suspect]
     Active Substance: FELODIPINE
     Indication: Hypertension
     Route: 048
     Dates: start: 20220403, end: 20230403
  12. DAPAGLIFLOZIN [Suspect]
     Active Substance: DAPAGLIFLOZIN
     Indication: Ill-defined disorder
     Dosage: UNKNOWN
     Dates: start: 20230425
  13. CANDESARTAN [Suspect]
     Active Substance: CANDESARTAN
     Dosage: 2 MG
     Dates: start: 20230412
  14. ASACOL [Suspect]
     Active Substance: MESALAMINE
     Indication: Colitis ulcerative
     Dates: start: 20161001
  15. ASACOL [Suspect]
     Active Substance: MESALAMINE
     Indication: Colitis ulcerative
     Dates: start: 20161001
  16. ASACOL [Suspect]
     Active Substance: MESALAMINE
     Indication: Colitis ulcerative
     Dates: start: 20161001
  17. ASACOL [Suspect]
     Active Substance: MESALAMINE
     Indication: Colitis ulcerative
     Dates: start: 20161001
  18. CORTIFOAM [Suspect]
     Active Substance: HYDROCORTISONE ACETATE
     Indication: Colitis ulcerative
     Route: 048
     Dates: start: 201707
  19. CORTIFOAM [Suspect]
     Active Substance: HYDROCORTISONE ACETATE
     Indication: Colitis ulcerative
     Dosage: 1 DOSAGE FORM, QD
     Route: 048
     Dates: start: 201707
  20. ENTYVIO [Suspect]
     Active Substance: VEDOLIZUMAB
     Indication: Colitis ulcerative
     Route: 042
     Dates: start: 2017, end: 2017
  21. HYDROCORTISONE [Suspect]
     Active Substance: HYDROCORTISONE
     Dosage: 8.0DF UNKNOWN
     Dates: start: 201807
  22. HYDROCORTISONE [Suspect]
     Active Substance: HYDROCORTISONE
     Dosage: 1.0DF UNKNOWN
     Dates: start: 201807
  23. MESALAMINE [Suspect]
     Active Substance: MESALAMINE
     Indication: Colitis ulcerative
     Route: 048
     Dates: start: 20160101, end: 20161001
  24. MESALAMINE [Suspect]
     Active Substance: MESALAMINE
     Indication: Colitis ulcerative
     Route: 048
     Dates: start: 20161001
  25. MESALAMINE [Suspect]
     Active Substance: MESALAMINE
     Indication: Colitis ulcerative
     Route: 048
  26. MESALAMINE [Suspect]
     Active Substance: MESALAMINE
     Indication: Colitis ulcerative
     Route: 048
     Dates: start: 20161001
  27. MESALAMINE [Suspect]
     Active Substance: MESALAMINE
     Indication: Colitis ulcerative
     Route: 048
     Dates: start: 20170101, end: 20170901
  28. MESALAMINE [Suspect]
     Active Substance: MESALAMINE
     Route: 048
     Dates: start: 20170101, end: 20171001
  29. MESALAMINE [Suspect]
     Active Substance: MESALAMINE
     Route: 048
     Dates: start: 20170101, end: 20171001
  30. VEDOLIZUMAB [Suspect]
     Active Substance: VEDOLIZUMAB
     Indication: Colitis ulcerative
     Dates: start: 2017, end: 2017
  31. WARFARIN [Suspect]
     Active Substance: WARFARIN
     Indication: Deep vein thrombosis
     Dates: start: 2009
  32. WARFARIN SODIUM [Suspect]
     Active Substance: WARFARIN SODIUM
     Dates: start: 2009
  33. ADALIMUMAB [Suspect]
     Active Substance: ADALIMUMAB
     Dosage: 8.0DF UNKNOWN
     Dates: start: 201707
  34. INFLIXIMAB [Suspect]
     Active Substance: INFLIXIMAB
     Indication: Crohn^s disease
     Route: 042
     Dates: start: 20170101, end: 20170901
  35. INFLIXIMAB [Suspect]
     Active Substance: INFLIXIMAB
     Indication: Crohn^s disease
     Route: 042
     Dates: start: 20170101, end: 20170901
  36. PREDNISONE [Suspect]
     Active Substance: PREDNISONE
     Indication: Colitis ulcerative
     Dosage: 50.0MG UNKNOWN
     Dates: start: 2009, end: 2009
  37. SULFASALAZINE [Suspect]
     Active Substance: SULFASALAZINE
     Dates: start: 2009, end: 2016
  38. ALBENDAZOLE [Suspect]
     Active Substance: ALBENDAZOLE
     Dosage: UNKNOWN
     Route: 042
  39. EPINEPHRINE [Suspect]
     Active Substance: EPINEPHRINE
     Dosage: UNKNOWN
  40. ASPIRIN [Suspect]
     Active Substance: ASPIRIN
     Dosage: MORNING
  41. MEBEVERINE [Suspect]
     Active Substance: MEBEVERINE
  42. ESCITALOPRAM [Suspect]
     Active Substance: ESCITALOPRAM OXALATE
  43. FUROSEMIDE [Suspect]
     Active Substance: FUROSEMIDE
     Dosage: MORNING
  44. METFORMIN [Suspect]
     Active Substance: METFORMIN HYDROCHLORIDE
  45. CHOLECALCIFEROL [Suspect]
     Active Substance: CHOLECALCIFEROL
     Dosage: UNKNOWN
  46. LEVOTHYROXINE [Suspect]
     Active Substance: LEVOTHYROXINE
     Dosage: MORNING
  47. GABAPENTIN [Suspect]
     Active Substance: GABAPENTIN
     Dosage: 5
  48. OXYCODONE [Suspect]
     Active Substance: OXYCODONE
  49. ACETAMINOPHEN [Suspect]
     Active Substance: ACETAMINOPHEN
     Dosage: 4
  50. COMIRNATY [Suspect]
     Active Substance: TOZINAMERAN
     Dates: start: 20220322
  51. CALCIUM CARBONATE\CHOLECALCIFEROL [Concomitant]
     Active Substance: CALCIUM CARBONATE\CHOLECALCIFEROL
     Indication: Gastritis
  52. HUMIRA [Concomitant]
     Active Substance: ADALIMUMAB
     Dosage: UNKNOWN
     Route: 048
     Dates: start: 201707
  53. GAVISCON [Concomitant]
     Active Substance: ALUMINUM HYDROXIDE\MAGNESIUM CARBONATE
  54. METHOTREXATE [Concomitant]
     Active Substance: METHOTREXATE
     Dates: start: 201709, end: 201709
  55. RENNIE [Concomitant]
  56. XELJANZ [Concomitant]
     Active Substance: TOFACITINIB CITRATE
     Indication: Colitis ulcerative
  57. ASPIRIN [Concomitant]
     Active Substance: ASPIRIN
  58. BISOPROLOL [Concomitant]
     Active Substance: BISOPROLOL
  59. CITALOPRAM [Concomitant]
     Active Substance: CITALOPRAM HYDROBROMIDE
  60. DAPAGLIFLOZIN [Concomitant]
     Active Substance: DAPAGLIFLOZIN
  61. LANSOPRAZOLE [Concomitant]
     Active Substance: LANSOPRAZOLE
  62. LYRICA [Concomitant]
     Active Substance: PREGABALIN
  63. ACETAMINOPHEN [Concomitant]
     Active Substance: ACETAMINOPHEN
  64. RAMIPRIL [Concomitant]
     Active Substance: RAMIPRIL
  65. TAMSULOSIN [Concomitant]
     Active Substance: TAMSULOSIN
  66. AMLODIPINE [Concomitant]
     Active Substance: AMLODIPINE BESYLATE
  67. DORZOLAMIDE [Concomitant]
     Active Substance: DORZOLAMIDE
  68. FESOTERODINE FUMARATE [Concomitant]
     Active Substance: FESOTERODINE FUMARATE
  69. FOLIC ACID [Concomitant]
     Active Substance: FOLIC ACID
  70. LATANOPROST [Concomitant]
     Active Substance: LATANOPROST
  71. POLYETHYLENE GLYCOL 3350\POTASSIUM CHLORIDE\SODIUM BICARBONATE\SODIUM [Concomitant]
     Active Substance: POLYETHYLENE GLYCOL 3350\POTASSIUM CHLORIDE\SODIUM BICARBONATE\SODIUM CHLORIDE
  72. LATANOPROST [Concomitant]
     Active Substance: LATANOPROST
  73. NITROFURANTOIN [Concomitant]
     Active Substance: NITROFURANTOIN
  74. RIVAROXABAN [Concomitant]
     Active Substance: RIVAROXABAN
  75. PARAFFIN [Concomitant]
     Active Substance: PARAFFIN
  76. BETNOVATE [Concomitant]
     Active Substance: BETAMETHASONE
  77. LATANOPROST [Concomitant]
     Active Substance: LATANOPROST
  78. EMPAGLIFLOZIN [Concomitant]
     Active Substance: EMPAGLIFLOZIN
  79. OMEPRAZOLE [Concomitant]
     Active Substance: OMEPRAZOLE
  80. ROSUVASTATIN [Concomitant]
     Active Substance: ROSUVASTATIN
  81. DORZOLAMIDE [Concomitant]
     Active Substance: DORZOLAMIDE
  82. CLOBETASONE BUTYRATE [Concomitant]
     Active Substance: CLOBETASONE BUTYRATE
  83. ATORVASTATIN [Concomitant]
     Active Substance: ATORVASTATIN
  84. FESOTERODINE FUMARATE [Concomitant]
     Active Substance: FESOTERODINE FUMARATE
  85. MOVICOL [Concomitant]
     Active Substance: POLYETHYLENE GLYCOL 3350\POTASSIUM CHLORIDE\SODIUM BICARBONATE\SODIUM CHLORIDE

REACTIONS (53)
  - Rhinitis [Not Recovered/Not Resolved]
  - Catarrh [Not Recovered/Not Resolved]
  - Frequent bowel movements [Unknown]
  - Deep vein thrombosis [Unknown]
  - Impaired quality of life [Unknown]
  - Condition aggravated [Unknown]
  - Inappropriate schedule of product administration [Not Recovered/Not Resolved]
  - Weight decreased [Unknown]
  - Rectal haemorrhage [Unknown]
  - Stress [Not Recovered/Not Resolved]
  - Colitis ulcerative [Unknown]
  - Product use in unapproved indication [Unknown]
  - Drug ineffective [Unknown]
  - Intentional product use issue [Not Recovered/Not Resolved]
  - Impaired work ability [Unknown]
  - Medication error [Unknown]
  - Off label use [Unknown]
  - Loss of personal independence in daily activities [Unknown]
  - Steroid dependence [Unknown]
  - Bronchiectasis [Unknown]
  - Haematochezia [Unknown]
  - Accidental overdose [Recovered/Resolved]
  - Confusional state [Unknown]
  - Gingival pain [Recovered/Resolved with Sequelae]
  - Tubulointerstitial nephritis [Recovering/Resolving]
  - Adverse drug reaction [Unknown]
  - COVID-19 [Recovered/Resolved with Sequelae]
  - Burns second degree [Recovered/Resolved]
  - Arthritis [Not Recovered/Not Resolved]
  - Pulmonary embolism [Recovered/Resolved with Sequelae]
  - Tinnitus [Not Recovered/Not Resolved]
  - Parosmia [Not Recovered/Not Resolved]
  - Rash [Not Recovered/Not Resolved]
  - Eczema [Recovered/Resolved]
  - Swollen tongue [Recovered/Resolved]
  - Nightmare [Recovered/Resolved]
  - Systemic lupus erythematosus [Recovered/Resolved with Sequelae]
  - Hypopnoea [Recovered/Resolved with Sequelae]
  - Migraine [Recovering/Resolving]
  - Vertigo [Recovering/Resolving]
  - Tinnitus [Not Recovered/Not Resolved]
  - Cardiac murmur [Recovering/Resolving]
  - Pain in extremity [Recovered/Resolved]
  - Abdominal discomfort [Not Recovered/Not Resolved]
  - Cerebrovascular accident [Recovered/Resolved with Sequelae]
  - Depression [Recovered/Resolved]
  - Dysgeusia [Not Recovered/Not Resolved]
  - Pyrexia [Unknown]
  - Somnolence [Recovered/Resolved]
  - Fatigue [Recovered/Resolved]
  - Pain [Recovered/Resolved]
  - Headache [Recovered/Resolved]
  - Palpitations [Not Recovered/Not Resolved]

NARRATIVE: CASE EVENT DATE: 20090101
